FAERS Safety Report 7343175-7 (Version None)
Quarter: 2011Q1

REPORT INFORMATION
  Report Type: 
  Country: None (occurrence: None)
  Receive Date: 20110310
  Receipt Date: 20110304
  Transmission Date: 20110831
  Serious: Yes (Hospitalization)
  Sender: FDA-Public Use
  Company Number: PHHO2010DE15905

PATIENT
  Sex: Female
  Weight: 79 kg

DRUGS (2)
  1. EVEROLIMUS [Suspect]
     Indication: LIVER TRANSPLANT
     Dosage: 1.5 MG, BID
     Route: 048
     Dates: start: 20100413
  2. PROGRAF [Suspect]
     Indication: LIVER TRANSPLANT
     Dosage: 3.5 MG / DAY
     Route: 048
     Dates: start: 20100306

REACTIONS (3)
  - RESTLESSNESS [None]
  - ANXIETY [None]
  - ADJUSTMENT DISORDER [None]
